FAERS Safety Report 22079710 (Version 1)
Quarter: 2023Q1

REPORT INFORMATION
  Report Type: Spontaneous
  Country: SE (occurrence: SE)
  Receive Date: 20230309
  Receipt Date: 20230309
  Transmission Date: 20230417
  Serious: Yes (Other)
  Sender: FDA-Public Use
  Company Number: SE-HBP-2023SE028506

PATIENT
  Age: 44 Year
  Sex: Female
  Weight: 69 kg

DRUGS (4)
  1. AKYNZEO (NETUPITANT\PALONOSETRON) [Suspect]
     Active Substance: NETUPITANT\PALONOSETRON
     Indication: Nausea
     Dosage: 1 DOSAGE
     Route: 048
     Dates: start: 20220615, end: 20220615
  2. CYCLOPHOSPHAMIDE [Concomitant]
     Active Substance: CYCLOPHOSPHAMIDE
     Dosage: UNK, UNKNOWN
     Route: 042
     Dates: start: 20220615, end: 20220615
  3. EPIRUBICIN [Concomitant]
     Active Substance: EPIRUBICIN
     Dosage: 90 UNK, UNKNOWN
     Route: 042
     Dates: start: 20220615, end: 20220615
  4. BETAPRED [Concomitant]
     Active Substance: BETAMETHASONE SODIUM PHOSPHATE
     Dosage: 12 MILLIGRAM, UNKNOWN
     Route: 048
     Dates: start: 20220615, end: 20220615

REACTIONS (2)
  - Dysphagia [Not Recovered/Not Resolved]
  - Off label use [Unknown]

NARRATIVE: CASE EVENT DATE: 20220617
